FAERS Safety Report 19228748 (Version 1)
Quarter: 2021Q2

REPORT INFORMATION
  Report Type: Spontaneous
  Country: CN (occurrence: CN)
  Receive Date: 20210507
  Receipt Date: 20210507
  Transmission Date: 20210717
  Serious: Yes (Life-Threatening, Hospitalization, Other)
  Sender: FDA-Public Use
  Company Number: CN-LUPIN PHARMACEUTICALS INC.-2021-06278

PATIENT
  Age: 32 Year
  Sex: Male

DRUGS (5)
  1. POTASSIUM CHLORIDE. [Suspect]
     Active Substance: POTASSIUM CHLORIDE
     Dosage: 10 GRAM, QD, AT A RATE OF 10 MMOL/HOURQ
     Route: 048
  2. INSULIN [Suspect]
     Active Substance: INSULIN NOS
     Indication: HYPERKALAEMIA
     Dosage: UNK
     Route: 065
  3. POTASSIUM CHLORIDE. [Suspect]
     Active Substance: POTASSIUM CHLORIDE
     Indication: HYPOKALAEMIA
     Dosage: 10 GRAM, QD, AT A RATE OF 10 MMOL/HOURQ
     Route: 042
  4. CALCIUM [Suspect]
     Active Substance: CALCIUM
     Indication: HYPERKALAEMIA
     Dosage: UNK
     Route: 065
  5. GLUCOSE [Suspect]
     Active Substance: DEXTROSE
     Indication: HYPERKALAEMIA
     Dosage: UNK
     Route: 065

REACTIONS (6)
  - Drug ineffective [Unknown]
  - Syncope [Recovered/Resolved]
  - Electrocardiogram ST segment elevation [Recovered/Resolved]
  - Atrioventricular block complete [Recovered/Resolved]
  - Hyperkalaemia [Recovered/Resolved]
  - Arteriospasm coronary [Recovered/Resolved]
